FAERS Safety Report 25655449 (Version 2)
Quarter: 2025Q3

REPORT INFORMATION
  Report Type: Report from Study
  Country: US (occurrence: US)
  Receive Date: 20250807
  Receipt Date: 20250812
  Transmission Date: 20251020
  Serious: No
  Sender: PFIZER
  Company Number: US-PFIZER INC-202500158215

PATIENT
  Age: 71 Year
  Sex: Female

DRUGS (9)
  1. TUKYSA [Suspect]
     Active Substance: TUCATINIB
     Indication: Breast cancer female
     Dosage: 2-(150 MG) TABLETS (300 MG TOTAL DOSE) ORALLY TWICE DAILY
     Route: 048
     Dates: start: 20250719
  2. CAPECITABINE [Concomitant]
     Active Substance: CAPECITABINE
  3. GABAPENTIN [Concomitant]
     Active Substance: GABAPENTIN
  4. MORPHINE SULFATE [Concomitant]
     Active Substance: MORPHINE SULFATE
  5. OLANZAPINE [Concomitant]
     Active Substance: OLANZAPINE
  6. ONE A DAY PROACTIVE 65+ FOR MEN + WOMEN [Concomitant]
  7. OXYCODONE [Concomitant]
     Active Substance: OXYCODONE
  8. PANTOPRAZOLE [Concomitant]
     Active Substance: PANTOPRAZOLE
  9. SERTRALINE [Concomitant]
     Active Substance: SERTRALINE HYDROCHLORIDE

REACTIONS (1)
  - Fatigue [Not Recovered/Not Resolved]
